FAERS Safety Report 10366127 (Version 1)
Quarter: 2014Q3

REPORT INFORMATION
  Report Type: Spontaneous
  Country: US (occurrence: None)
  Receive Date: 20140805
  Receipt Date: 20140805
  Transmission Date: 20150326
  Serious: No
  Sender: FDA-Public Use
  Company Number: None

PATIENT
  Age: 57 Year
  Sex: Male
  Weight: 64.41 kg

DRUGS (6)
  1. NASAL SPRAY [Concomitant]
     Active Substance: UNSPECIFIED INGREDIENT
  2. ASPIRIN. [Concomitant]
     Active Substance: ASPIRIN
  3. SINUS RELIEF (OXYMETAZOLINE HYDROCHLORIDE) [Suspect]
     Active Substance: OXYMETAZOLINE HYDROCHLORIDE
     Indication: SINUS DISORDER
     Dosage: 12 HOUR 1 FL OZ 30ML BEDTIME NASAL
     Route: 045
     Dates: start: 20140717, end: 20140717
  4. METOPROLOL [Concomitant]
     Active Substance: METOPROLOL
  5. SINUS RELIEF (OXYMETAZOLINE HYDROCHLORIDE) [Suspect]
     Active Substance: OXYMETAZOLINE HYDROCHLORIDE
     Indication: SWELLING
     Dosage: 12 HOUR 1 FL OZ 30ML BEDTIME NASAL
     Route: 045
     Dates: start: 20140717, end: 20140717
  6. METHADONE [Concomitant]
     Active Substance: METHADONE HYDROCHLORIDE

REACTIONS (10)
  - Rhinorrhoea [None]
  - Eye irritation [None]
  - Tenderness [None]
  - Nausea [None]
  - Vomiting [None]
  - Scab [None]
  - Lacrimation increased [None]
  - Drug effect increased [None]
  - Nasal discomfort [None]
  - Throat irritation [None]

NARRATIVE: CASE EVENT DATE: 20140716
